FAERS Safety Report 12083272 (Version 1)
Quarter: 2016Q1

REPORT INFORMATION
  Report Type: Spontaneous
  Country: US (occurrence: US)
  Receive Date: 20160217
  Receipt Date: 20160217
  Transmission Date: 20160526
  Serious: No
  Sender: FDA-Public Use
  Company Number: US-MYLANLABS-2015M1002295

PATIENT
  Age: 7 Year
  Sex: Male
  Weight: 24.36 kg

DRUGS (1)
  1. EPIPEN JR [Suspect]
     Active Substance: EPINEPHRINE
     Indication: FOOD ALLERGY
     Dosage: 0.15 MG, PRN
     Route: 030
     Dates: start: 201501, end: 201501

REACTIONS (1)
  - Injection site laceration [Recovered/Resolved]

NARRATIVE: CASE EVENT DATE: 201501
